FAERS Safety Report 15323223 (Version 1)
Quarter: 2018Q3

REPORT INFORMATION
  Report Type: Spontaneous
  Country: GB (occurrence: GB)
  Receive Date: 20180827
  Receipt Date: 20180827
  Transmission Date: 20181010
  Serious: Yes (Other)
  Sender: FDA-Public Use
  Company Number: GB-009507513-1808GBR011237

PATIENT
  Age: 60 Year
  Sex: Male

DRUGS (3)
  1. PEMBROLIZUMAB. [Suspect]
     Active Substance: PEMBROLIZUMAB
     Indication: TRANSITIONAL CELL CARCINOMA METASTATIC
     Dosage: UNK
     Route: 042
     Dates: start: 20180301
  2. AMLODIPINE [Concomitant]
     Active Substance: AMLODIPINE BESYLATE
  3. ALLOPURINOL. [Concomitant]
     Active Substance: ALLOPURINOL

REACTIONS (4)
  - Musculoskeletal pain [Unknown]
  - Oropharyngeal pain [Unknown]
  - Chest pain [Unknown]
  - Pericarditis [Unknown]

NARRATIVE: CASE EVENT DATE: 20180603
